FAERS Safety Report 8084013-7 (Version None)
Quarter: 2012Q1

REPORT INFORMATION
  Report Type: 
  Country: None (occurrence: None)
  Receive Date: 20120128
  Receipt Date: 20110211
  Transmission Date: 20120608
  Serious: No
  Sender: FDA-Public Use
  Company Number: US-ABBOTT-11P-163-0701247-00

PATIENT
  Sex: Male
  Weight: 72.64 kg

DRUGS (11)
  1. HUMIRA [Suspect]
  2. IBUPROFEN [Concomitant]
     Indication: ANKYLOSING SPONDYLITIS
  3. FISH OIL [Concomitant]
     Indication: PRODUCT USED FOR UNKNOWN INDICATION
  4. ASCORBIC ACID [Concomitant]
     Indication: PRODUCT USED FOR UNKNOWN INDICATION
  5. MULTI-VITAMIN [Concomitant]
     Indication: PRODUCT USED FOR UNKNOWN INDICATION
  6. VITAMIN E [Concomitant]
     Indication: PRODUCT USED FOR UNKNOWN INDICATION
  7. HYDROCODONE BITARTRATE [Concomitant]
     Indication: PAIN
  8. VITAMIN B-12 [Concomitant]
     Indication: PRODUCT USED FOR UNKNOWN INDICATION
  9. HUMIRA [Suspect]
     Indication: CROHN'S DISEASE
     Dates: start: 20101201, end: 20101201
  10. HUMIRA [Suspect]
     Indication: ANKYLOSING SPONDYLITIS
     Dosage: LOADING DOSE
     Dates: start: 20101215, end: 20101215
  11. VITAMIN B6 [Concomitant]
     Indication: PRODUCT USED FOR UNKNOWN INDICATION

REACTIONS (5)
  - INJECTION SITE RASH [None]
  - ERYTHEMA [None]
  - ACNE PUSTULAR [None]
  - ACNE [None]
  - SCAB [None]
